FAERS Safety Report 5130273-1 (Version None)
Quarter: 2006Q4

REPORT INFORMATION
  Report Type: 
  Country: None (occurrence: None)
  Receive Date: 20061018
  Receipt Date: 20061018
  Transmission Date: 20070319
  Serious: Yes (Hospitalization)
  Sender: FDA-Public Use
  Company Number: None

PATIENT
  Age: 75 Year
  Sex: Female
  Weight: 113 kg

DRUGS (2)
  1. ZEMURON [Suspect]
     Indication: MUSCLE RELAXANT THERAPY
     Dosage: 50MG, THEN 20MGX2 THEN 10MG X 1 ONCE Q30MIN IV BOLUS
     Route: 040
     Dates: start: 20061016, end: 20061016
  2. ZEMURON [Suspect]
     Indication: SURGERY
     Dosage: 50MG, THEN 20MGX2 THEN 10MG X 1 ONCE Q30MIN IV BOLUS
     Route: 040
     Dates: start: 20061016, end: 20061016

REACTIONS (2)
  - DELAYED RECOVERY FROM ANAESTHESIA [None]
  - PROCEDURAL COMPLICATION [None]
